FAERS Safety Report 21070133 (Version 2)
Quarter: 2022Q3

REPORT INFORMATION
  Report Type: Report from Study
  Country: GB (occurrence: GB)
  Receive Date: 20220712
  Receipt Date: 20220718
  Transmission Date: 20221027
  Serious: Yes (Other)
  Sender: FDA-Public Use
  Company Number: GB-NOVARTISPH-NVSC2022GB082830

PATIENT
  Sex: Male

DRUGS (1)
  1. KESIMPTA [Suspect]
     Active Substance: OFATUMUMAB
     Indication: Multiple sclerosis
     Dosage: 20 MG, QW
     Route: 058
     Dates: start: 20220404

REACTIONS (11)
  - Chlamydial infection [Unknown]
  - Malaise [Unknown]
  - Back pain [Unknown]
  - Nausea [Unknown]
  - Chills [Unknown]
  - Memory impairment [Unknown]
  - Pyrexia [Unknown]
  - Headache [Unknown]
  - Fatigue [Unknown]
  - Injection site discomfort [Unknown]
  - Product dose omission in error [Unknown]
